FAERS Safety Report 9984187 (Version 2)
Quarter: 2014Q1

REPORT INFORMATION
  Report Type: Report from Study
  Country: US (occurrence: US)
  Receive Date: 20140307
  Receipt Date: 20140307
  Transmission Date: 20141002
  Serious: No
  Sender: FDA-Public Use
  Company Number: US-ABBVIE-13P-163-1176898-00

PATIENT
  Age: 48 Year
  Sex: Female

DRUGS (10)
  1. HUMIRA [Suspect]
     Indication: PSORIASIS
     Dates: start: 20131204, end: 20131204
  2. HUMIRA [Suspect]
     Indication: PSORIASIS
     Dates: start: 20131211, end: 20131211
  3. HUMIRA [Suspect]
     Dates: start: 20131218, end: 20131218
  4. HUMIRA [Suspect]
  5. ZYRTEC [Concomitant]
     Indication: PRURITUS
  6. ZYRTEC [Concomitant]
     Indication: PSORIASIS
  7. LIPITOR [Concomitant]
     Indication: PRODUCT USED FOR UNKNOWN INDICATION
  8. SYNTHROID [Concomitant]
     Indication: PRODUCT USED FOR UNKNOWN INDICATION
  9. PREDNISONE [Concomitant]
     Indication: PUSTULAR PSORIASIS
     Dates: start: 20131218
  10. FOLIC ACID [Concomitant]
     Indication: PRODUCT USED FOR UNKNOWN INDICATION
     Dates: start: 20131205

REACTIONS (9)
  - Immune system disorder [Not Recovered/Not Resolved]
  - Alcohol use [Unknown]
  - Paraesthesia oral [Recovered/Resolved]
  - Tongue pruritus [Not Recovered/Not Resolved]
  - Lip pruritus [Recovered/Resolved]
  - Pruritus [Not Recovered/Not Resolved]
  - Stress [Not Recovered/Not Resolved]
  - Insomnia [Not Recovered/Not Resolved]
  - Paraesthesia oral [Not Recovered/Not Resolved]
